FAERS Safety Report 7681336-8 (Version None)
Quarter: 2011Q3

REPORT INFORMATION
  Report Type: 
  Country: None (occurrence: None)
  Receive Date: 20110812
  Receipt Date: 20110804
  Transmission Date: 20111222
  Serious: Yes (Other)
  Sender: FDA-Public Use
  Company Number: US-ABBOTT-11P-163-0845311-00

PATIENT
  Age: 34 Year
  Sex: Female

DRUGS (5)
  1. HUMIRA [Suspect]
     Indication: PSORIASIS
     Dates: start: 20110309, end: 20110615
  2. ZOLOFT [Concomitant]
     Indication: ANXIETY
  3. VITAMIN B COMPLEX CAP [Concomitant]
     Indication: VITAMIN SUPPLEMENTATION
  4. LOVAZA [Concomitant]
     Indication: MEDICAL DIET
  5. HUMIRA [Suspect]

REACTIONS (3)
  - FOOT FRACTURE [None]
  - FALL [None]
  - BUNION [None]
